FAERS Safety Report 10235325 (Version 1)
Quarter: 2014Q1

REPORT INFORMATION
  Report Type: Spontaneous
  Country: US (occurrence: None)
  Receive Date: 20140306
  Receipt Date: 20140306
  Transmission Date: 20141002
  Serious: Yes (Other)
  Sender: FDA-Public Use
  Company Number: 163-21880-13092497

PATIENT
  Age: 63 Year
  Sex: Female
  Weight: 55.34 kg

DRUGS (3)
  1. REVLIMID (LENALIDOMIDE) (25 MILLIGRAM, CAPSULES) [Suspect]
     Indication: PLASMA CELL MYELOMA
     Route: 048
     Dates: start: 20130814, end: 20130828
  2. HCTZ (HYDROCHLOROTHIAZIDE) [Concomitant]
  3. LYRICA (PREGABALIN) [Concomitant]

REACTIONS (4)
  - Hypersensitivity [None]
  - Urticaria [None]
  - Chest discomfort [None]
  - Pruritus [None]
